FAERS Safety Report 21483095 (Version 1)
Quarter: 2022Q4

REPORT INFORMATION
  Report Type: Report from Study
  Country: US (occurrence: US)
  Receive Date: 20221020
  Receipt Date: 20221020
  Transmission Date: 20230113
  Serious: No
  Sender: FDA-Public Use
  Company Number: US-ABBVIE-4162251

PATIENT
  Sex: Male

DRUGS (2)
  1. CARBIDOPA\LEVODOPA [Suspect]
     Active Substance: CARBIDOPA\LEVODOPA
     Indication: Product used for unknown indication
     Route: 050
     Dates: start: 20171012
  2. CARBIDOPA\LEVODOPA [Suspect]
     Active Substance: CARBIDOPA\LEVODOPA

REACTIONS (14)
  - Bradykinesia [Unknown]
  - Speech disorder [Unknown]
  - Device use error [Unknown]
  - Stoma site discharge [Unknown]
  - Crush syndrome [Unknown]
  - Dementia [Unknown]
  - Freezing phenomenon [Unknown]
  - Cognitive disorder [Unknown]
  - Dysphagia [Unknown]
  - Embedded device [Unknown]
  - Gastrointestinal disorder [Unknown]
  - On and off phenomenon [Unknown]
  - Condition aggravated [Unknown]
  - Drug ineffective [Unknown]
